FAERS Safety Report 7877858-7 (Version None)
Quarter: 2011Q4

REPORT INFORMATION
  Report Type: 
  Country: None (occurrence: None)
  Receive Date: 20111031
  Receipt Date: 20111031
  Transmission Date: 20120403
  Serious: Yes (Other)
  Sender: FDA-Public Use
  Company Number: None

PATIENT
  Age: 36 Year
  Sex: Female
  Weight: 56.699 kg

DRUGS (1)
  1. LYRICA [Suspect]
     Indication: PAIN
     Dates: start: 20110422, end: 20110718

REACTIONS (2)
  - PERIPHERAL SENSORY NEUROPATHY [None]
  - NEUROPATHY PERIPHERAL [None]
